FAERS Safety Report 7183163-7 (Version None)
Quarter: 2010Q4

REPORT INFORMATION
  Report Type: 
  Country: None (occurrence: None)
  Receive Date: 20101210
  Receipt Date: 20101124
  Transmission Date: 20110411
  Serious: Yes (Other)
  Sender: FDA-Public Use
  Company Number: 1000017569

PATIENT
  Age: 68 Year
  Sex: Female

DRUGS (12)
  1. MEMANTINE (MEMANTINE HYDROCHLORIDE) [Suspect]
     Indication: DEMENTIA ALZHEIMER'S TYPE
     Dosage: 5 MG (5 MG, 1 IN 1 D) ORAL; 10 MG (5 MG, 2 IN 1 D) ORAL; 15 MG, (2 IN 1 D) ORAL
     Route: 048
  2. MEMANTINE (MEMANTINE HYDROCHLORIDE) [Suspect]
     Indication: DEMENTIA ALZHEIMER'S TYPE
     Dosage: 5 MG (5 MG, 1 IN 1 D) ORAL; 10 MG (5 MG, 2 IN 1 D) ORAL; 15 MG, (2 IN 1 D) ORAL
     Route: 048
     Dates: start: 20101013
  3. MEMANTINE (MEMANTINE HYDROCHLORIDE) [Suspect]
     Indication: DEMENTIA ALZHEIMER'S TYPE
     Dosage: 20 MG, (10 MG, 2 IN 1 D) ORAL
     Route: 048
  4. MEMANTINE (MEMANTINE HYDROCHLORIDE) [Suspect]
     Indication: DEMENTIA ALZHEIMER'S TYPE
     Dosage: 10 MG (5 MG, 2 IN 1 D) ORAL
     Route: 048
  5. SIMVASTATIN [Concomitant]
  6. ATENOLOL [Concomitant]
  7. FELODIPINE [Concomitant]
  8. LOSARTAN [Concomitant]
  9. XALACOM (LATANOPROST, TIMOLOL) [Concomitant]
  10. TRAZODONE [Concomitant]
  11. LORAZEPAM [Concomitant]
  12. RIVASTIGMINE [Concomitant]

REACTIONS (7)
  - AGGRESSION [None]
  - AGITATION [None]
  - CONDITION AGGRAVATED [None]
  - DYSARTHRIA [None]
  - FEELING ABNORMAL [None]
  - GAIT DISTURBANCE [None]
  - TREMOR [None]
